FAERS Safety Report 25165979 (Version 1)
Quarter: 2025Q2

REPORT INFORMATION
  Report Type: Spontaneous
  Country: DE (occurrence: DE)
  Receive Date: 20250407
  Receipt Date: 20250407
  Transmission Date: 20250717
  Serious: Yes (Other)
  Sender: TEVA
  Company Number: None

PATIENT
  Age: 53 Year
  Sex: Female
  Weight: 80 kg

DRUGS (1)
  1. CIPROFLOXACIN [Suspect]
     Active Substance: CIPROFLOXACIN
     Indication: Cystitis noninfective
     Route: 048
     Dates: start: 2022

REACTIONS (7)
  - Suicidal ideation [Not Recovered/Not Resolved]
  - Somnolence [Not Recovered/Not Resolved]
  - Gait disturbance [Not Recovered/Not Resolved]
  - Anxiety [Not Recovered/Not Resolved]
  - Brain fog [Not Recovered/Not Resolved]
  - Nausea [Not Recovered/Not Resolved]
  - Depression [Not Recovered/Not Resolved]

NARRATIVE: CASE EVENT DATE: 20220819
